FAERS Safety Report 12284771 (Version 1)
Quarter: 2016Q2

REPORT INFORMATION
  Report Type: Spontaneous
  Country: US (occurrence: US)
  Receive Date: 20160420
  Receipt Date: 20160420
  Transmission Date: 20160815
  Serious: No
  Sender: FDA-Public Use
  Company Number: US-TEVA-592306USA

PATIENT
  Age: 61 Year
  Sex: Male
  Weight: 56.75 kg

DRUGS (1)
  1. ZOLPIDEM [Suspect]
     Active Substance: ZOLPIDEM\ZOLPIDEM TARTRATE
     Indication: INSOMNIA
     Route: 065
     Dates: start: 20150501, end: 20150630

REACTIONS (6)
  - Miosis [Unknown]
  - Insomnia [Unknown]
  - Hallucination [Unknown]
  - Pain [Unknown]
  - Headache [Unknown]
  - Accidental overdose [Unknown]

NARRATIVE: CASE EVENT DATE: 201506
